FAERS Safety Report 11075533 (Version 1)
Quarter: 2015Q2

REPORT INFORMATION
  Report Type: Spontaneous
  Country: US (occurrence: US)
  Receive Date: 20150429
  Receipt Date: 20150429
  Transmission Date: 20150821
  Serious: No
  Sender: FDA-Public Use
  Company Number: US-ASTRAZENECA-2015SE37657

PATIENT
  Age: 3075 Day
  Sex: Male
  Weight: 35.8 kg

DRUGS (3)
  1. PULMICORT FLEXHALER [Suspect]
     Active Substance: BUDESONIDE
     Indication: ASTHMA
     Dosage: 90 MCG 1 PUFF TWICE DAILY AS NEEDED
     Route: 055
     Dates: start: 2013
  2. SINGULAIR [Concomitant]
     Active Substance: MONTELUKAST SODIUM
     Indication: HYPERSENSITIVITY
     Route: 065
     Dates: start: 2013
  3. NASONEX [Concomitant]
     Active Substance: MOMETASONE FUROATE
     Indication: HYPERSENSITIVITY
     Route: 065
     Dates: start: 2013

REACTIONS (2)
  - Papule [Unknown]
  - Off label use [Unknown]

NARRATIVE: CASE EVENT DATE: 201504
